FAERS Safety Report 23973277 (Version 1)
Quarter: 2024Q2

REPORT INFORMATION
  Report Type: Spontaneous
  Country: CN (occurrence: CN)
  Receive Date: 20240613
  Receipt Date: 20240613
  Transmission Date: 20240715
  Serious: Yes (Life-Threatening, Other)
  Sender: FDA-Public Use
  Company Number: CN-FreseniusKabi-FK202409082

PATIENT
  Age: 47 Year
  Sex: Male
  Weight: 67 kg

DRUGS (1)
  1. PROPOFOL [Suspect]
     Active Substance: PROPOFOL
     Indication: Endoscopy gastrointestinal
     Dosage: FORM OF ADMIN: INJECTION
     Route: 041
     Dates: start: 20240520, end: 20240520

REACTIONS (3)
  - Delirium [Recovering/Resolving]
  - Cognitive disorder [Recovering/Resolving]
  - Restlessness [Recovering/Resolving]

NARRATIVE: CASE EVENT DATE: 20240520
